FAERS Safety Report 6741221-2 (Version None)
Quarter: 2010Q2

REPORT INFORMATION
  Report Type: 
  Country: None (occurrence: None)
  Receive Date: 20100526
  Receipt Date: 20100520
  Transmission Date: 20101027
  Serious: No
  Sender: FDA-Public Use
  Company Number: US-BAYER-201015800BCC

PATIENT
  Age: 21 Year
  Sex: Female
  Weight: 64 kg

DRUGS (2)
  1. ALEVE [Suspect]
     Indication: URINARY TRACT INFECTION
     Dosage: TOTAL DAILY DOSE: 880 MG  UNIT DOSE: 220 MG
     Route: 048
     Dates: start: 20100519
  2. URICLENSE [Concomitant]
     Indication: URINARY TRACT INFECTION
     Route: 065

REACTIONS (3)
  - EYE SWELLING [None]
  - FACE OEDEMA [None]
  - OEDEMA PERIPHERAL [None]
